FAERS Safety Report 17225945 (Version 3)
Quarter: 2020Q1

REPORT INFORMATION
  Report Type: Report from Study
  Country: US (occurrence: US)
  Receive Date: 20200102
  Receipt Date: 20200221
  Transmission Date: 20200409
  Serious: Yes (Hospitalization)
  Sender: FDA-Public Use
  Company Number: US-ACTELION-A-NJ2019-199947

PATIENT
  Sex: Female

DRUGS (1)
  1. OPSUMIT [Suspect]
     Active Substance: MACITENTAN
     Indication: PRODUCT USED FOR UNKNOWN INDICATION
     Dosage: 10 MG, QD
     Route: 048
     Dates: start: 20180621

REACTIONS (6)
  - Pneumonia [Unknown]
  - Dyspnoea [Unknown]
  - Product dose omission [Unknown]
  - Malaise [Unknown]
  - Gastrointestinal infection [Unknown]
  - Gastric disorder [Unknown]
